FAERS Safety Report 20023391 (Version 1)
Quarter: 2021Q4

REPORT INFORMATION
  Report Type: Spontaneous
  Country: JP (occurrence: JP)
  Receive Date: 20211102
  Receipt Date: 20211102
  Transmission Date: 20220304
  Serious: Yes (Hospitalization)
  Sender: FDA-Public Use
  Company Number: JP-CELLTRION-2021-JP-000506

PATIENT
  Age: 85 Year
  Sex: Female
  Weight: 30 kg

DRUGS (7)
  1. PREGABALIN [Suspect]
     Active Substance: PREGABALIN
     Indication: Product used for unknown indication
     Dosage: 50 MG
  2. FEXOFENADINE HYDROCHLORIDE [Concomitant]
     Active Substance: FEXOFENADINE HYDROCHLORIDE
     Dosage: 60 MG
  3. LANSOPRAZOLE [Concomitant]
     Active Substance: LANSOPRAZOLE
     Dosage: 15 MG
  4. SODIUM FERROUS CITRATE [Concomitant]
     Active Substance: SODIUM FERROUS CITRATE
     Dosage: 50 MG
  5. CLOPIDOGREL [Concomitant]
     Active Substance: CLOPIDOGREL BISULFATE
     Dosage: 75 MG
  6. AZILSARTAN KAMEDOXOMIL [Concomitant]
     Active Substance: AZILSARTAN KAMEDOXOMIL
     Dosage: 20 MG
  7. AROTINOLOL [Concomitant]
     Active Substance: AROTINOLOL
     Dosage: 5 MG

REACTIONS (1)
  - Respiratory muscle weakness [Recovered/Resolved]
